FAERS Safety Report 4693566-8 (Version None)
Quarter: 2005Q2

REPORT INFORMATION
  Report Type: 
  Country: None (occurrence: None)
  Receive Date: 20050615
  Receipt Date: 20050531
  Transmission Date: 20051028
  Serious: Yes (Hospitalization)
  Sender: FDA-Public Use
  Company Number: 430037K05USA

PATIENT
  Age: 46 Year
  Sex: Female
  Weight: 66.8 kg

DRUGS (5)
  1. NOVANTRONE [Suspect]
     Indication: MULTIPLE SCLEROSIS
     Dosage: 18 MG, INTRAVENOUS
     Route: 042
     Dates: start: 20010823, end: 20021016
  2. EFFEXOR [Concomitant]
  3. WELLBUTRIN [Concomitant]
  4. CHOLESTEROL TABLET (CHOLESTEROL- AND TRIGLYCERIDE REDUCERS) [Concomitant]
  5. ALL OTHER THERAPEUTIC PRODUCTS (ALL OTHER THERAPEUTIC PRODUCTS) [Concomitant]

REACTIONS (5)
  - CHEST PAIN [None]
  - EJECTION FRACTION DECREASED [None]
  - GASTROOESOPHAGEAL REFLUX DISEASE [None]
  - MYOCARDIAL INFARCTION [None]
  - SCAR [None]
